FAERS Safety Report 12282284 (Version 3)
Quarter: 2016Q2

REPORT INFORMATION
  Report Type: Report from Study
  Country: US (occurrence: US)
  Receive Date: 20160419
  Receipt Date: 20160603
  Transmission Date: 20160815
  Serious: Yes (Hospitalization, Other)
  Sender: FDA-Public Use
  Company Number: US-JNJFOC-20150900155

PATIENT
  Age: 59 Year
  Sex: Male
  Weight: 72 kg

DRUGS (11)
  1. TRABECTEDIN [Suspect]
     Active Substance: TRABECTEDIN
     Route: 042
  2. PALONOSETRON HYDROCHLORIDE. [Concomitant]
     Active Substance: PALONOSETRON HYDROCHLORIDE
  3. XGEVA [Concomitant]
     Active Substance: DENOSUMAB
  4. NEULASTA [Concomitant]
     Active Substance: PEGFILGRASTIM
  5. LORAZEPAM. [Concomitant]
     Active Substance: LORAZEPAM
  6. IBUPROFEN. [Concomitant]
     Active Substance: IBUPROFEN
  7. CLARITIN [Concomitant]
     Active Substance: LORATADINE
  8. TRABECTEDIN [Suspect]
     Active Substance: TRABECTEDIN
     Indication: LEIOMYOSARCOMA METASTATIC
     Dosage: CYCLE 1
     Route: 042
     Dates: start: 20150820, end: 20150821
  9. DEXAMETHASONE SODIUM PHOSPHATE. [Concomitant]
     Active Substance: DEXAMETHASONE SODIUM PHOSPHATE
     Indication: PROPHYLAXIS
     Route: 065
  10. CARVEDILOL. [Concomitant]
     Active Substance: CARVEDILOL
  11. PROCHLORPERAZINE MALEATE. [Concomitant]
     Active Substance: PROCHLORPERAZINE MALEATE

REACTIONS (3)
  - Acute kidney injury [None]
  - Rhabdomyolysis [Recovered/Resolved]
  - Cardiac failure congestive [Recovered/Resolved]

NARRATIVE: CASE EVENT DATE: 20150830
